FAERS Safety Report 12527578 (Version 3)
Quarter: 2016Q3

REPORT INFORMATION
  Report Type: Report from Study
  Country: CA (occurrence: CA)
  Receive Date: 20160705
  Receipt Date: 20160715
  Transmission Date: 20161109
  Serious: Yes (Other)
  Sender: FDA-Public Use
  Company Number: CA-ROCHE-1543833

PATIENT
  Age: 52 Year
  Sex: Male

DRUGS (13)
  1. DIPHENHYDRAMINE HCL [Concomitant]
     Active Substance: DIPHENHYDRAMINE HYDROCHLORIDE
     Indication: PREMEDICATION
     Route: 048
     Dates: start: 20150203
  2. ACETYLSALICYLIC ACID [Concomitant]
     Active Substance: ASPIRIN
  3. TYLENOL ARTHRITIS PAIN [Concomitant]
     Active Substance: ACETAMINOPHEN
  4. METHYLPREDNISOLONE. [Concomitant]
     Active Substance: METHYLPREDNISOLONE
     Indication: PREMEDICATION
     Route: 042
     Dates: start: 20150203
  5. HYDROCHLOROTHIAZIDE. [Concomitant]
     Active Substance: HYDROCHLOROTHIAZIDE
  6. ATORVASTATIN [Concomitant]
     Active Substance: ATORVASTATIN
  7. PLAQUENIL [Concomitant]
     Active Substance: HYDROXYCHLOROQUINE SULFATE
  8. COZAAR [Concomitant]
     Active Substance: LOSARTAN POTASSIUM
  9. RITUXAN [Suspect]
     Active Substance: RITUXIMAB
     Indication: RHEUMATOID ARTHRITIS
     Route: 042
     Dates: start: 20150203
  10. ACETAMINOPHEN. [Concomitant]
     Active Substance: ACETAMINOPHEN
     Indication: PREMEDICATION
     Route: 048
     Dates: start: 20150203
  11. LASIX [Concomitant]
     Active Substance: FUROSEMIDE
  12. VENTOLIN [Concomitant]
     Active Substance: ALBUTEROL SULFATE
  13. LEFLUNOMIDE. [Concomitant]
     Active Substance: LEFLUNOMIDE

REACTIONS (16)
  - Blood pressure increased [Recovering/Resolving]
  - Hypertension [Unknown]
  - Rheumatoid arthritis [Recovering/Resolving]
  - Renal impairment [Not Recovered/Not Resolved]
  - Weight decreased [Unknown]
  - Rhinitis [Not Recovered/Not Resolved]
  - Peripheral swelling [Not Recovered/Not Resolved]
  - Deep vein thrombosis [Unknown]
  - Ingrown hair [Unknown]
  - Pain in extremity [Unknown]
  - Infusion related reaction [Unknown]
  - Fistula [Unknown]
  - Oropharyngeal pain [Not Recovered/Not Resolved]
  - Oxygen saturation decreased [Unknown]
  - Oxygen saturation decreased [Unknown]
  - Heart rate decreased [Unknown]

NARRATIVE: CASE EVENT DATE: 20150223
